FAERS Safety Report 9743270 (Version 2)
Quarter: 2015Q3

REPORT INFORMATION
  Report Type: Spontaneous
  Country: US (occurrence: US)
  Receive Date: 20131210
  Receipt Date: 20150804
  Transmission Date: 20151125
  Serious: No
  Sender: FDA-Public Use
  Company Number: US-GILEAD-2009-0025197

PATIENT
  Age: 82 Year
  Sex: Female
  Weight: 68.95 kg

DRUGS (12)
  1. PROTONIX [Concomitant]
     Active Substance: PANTOPRAZOLE SODIUM
  2. ZOLPIDEM [Concomitant]
     Active Substance: ZOLPIDEM\ZOLPIDEM TARTRATE
  3. CITALOPRAM [Concomitant]
     Active Substance: CITALOPRAM HYDROBROMIDE
  4. AZITHROMYCIN [Concomitant]
     Active Substance: AZITHROMYCIN ANHYDROUS
  5. LETAIRIS [Suspect]
     Active Substance: AMBRISENTAN
     Indication: PULMONARY ARTERIAL HYPERTENSION
     Route: 048
     Dates: start: 20091008
  6. DILTIAZEM [Concomitant]
     Active Substance: DILTIAZEM
  7. PILOCARPINE. [Concomitant]
     Active Substance: PILOCARPINE
  8. DIGOXIN. [Concomitant]
     Active Substance: DIGOXIN
  9. PREDNISONE. [Concomitant]
     Active Substance: PREDNISONE
  10. WARFARIN [Concomitant]
     Active Substance: WARFARIN
  11. FUROSEMIDE. [Concomitant]
     Active Substance: FUROSEMIDE
  12. GABAPENTIN. [Concomitant]
     Active Substance: GABAPENTIN

REACTIONS (1)
  - Abdominal pain upper [Unknown]
